FAERS Safety Report 9706851 (Version 2)
Quarter: 2014Q2

REPORT INFORMATION
  Report Type: Report from Study
  Country: JP (occurrence: JP)
  Receive Date: 20131125
  Receipt Date: 20140402
  Transmission Date: 20141212
  Serious: Yes (Other)
  Sender: FDA-Public Use
  Company Number: JP-JNJFOC-20131113310

PATIENT
  Age: 74 Year
  Sex: Female
  Weight: 52 kg

DRUGS (16)
  1. SIMPONI [Suspect]
     Indication: RHEUMATOID ARTHRITIS
     Route: 058
     Dates: start: 20120926, end: 20120926
  2. SIMPONI [Suspect]
     Indication: RHEUMATOID ARTHRITIS
     Route: 058
     Dates: start: 20121024, end: 20121024
  3. SIMPONI [Suspect]
     Indication: RHEUMATOID ARTHRITIS
     Route: 058
     Dates: start: 20121121, end: 20121121
  4. SIMPONI [Suspect]
     Indication: RHEUMATOID ARTHRITIS
     Route: 058
     Dates: start: 20121219, end: 20121219
  5. SIMPONI [Suspect]
     Indication: RHEUMATOID ARTHRITIS
     Route: 058
     Dates: start: 20130116, end: 20130116
  6. SIMPONI [Suspect]
     Indication: RHEUMATOID ARTHRITIS
     Route: 058
     Dates: start: 20130213, end: 20130213
  7. FOLIAMIN [Concomitant]
     Indication: PROPHYLAXIS
     Route: 065
  8. LOXONIN [Concomitant]
     Indication: RHEUMATOID ARTHRITIS
     Route: 065
  9. TAKEPRON [Concomitant]
     Indication: PROPHYLAXIS
     Route: 048
  10. METHOTREXATE [Concomitant]
     Indication: RHEUMATOID ARTHRITIS
     Route: 065
  11. SALAZOSULFAPYRIDINE [Concomitant]
     Indication: RHEUMATOID ARTHRITIS
     Route: 065
  12. PREDNISOLONE [Concomitant]
     Indication: RHEUMATOID ARTHRITIS
     Route: 048
  13. MARZULENE-S [Concomitant]
     Indication: PROPHYLAXIS
     Route: 048
  14. EDIROL [Concomitant]
     Indication: OSTEOPOROSIS
     Route: 048
  15. FOSAMAC [Concomitant]
     Indication: OSTEOPOROSIS
     Route: 048
  16. OPALMON [Concomitant]
     Indication: LUMBAR SPINAL STENOSIS
     Route: 048

REACTIONS (2)
  - Metastases to lung [Not Recovered/Not Resolved]
  - Oesophageal cancer metastatic [Not Recovered/Not Resolved]
